FAERS Safety Report 6194638-1 (Version None)
Quarter: 2009Q2

REPORT INFORMATION
  Report Type: 
  Country: None (occurrence: None)
  Receive Date: 20090519
  Receipt Date: 20090506
  Transmission Date: 20091009
  Serious: Yes (Other)
  Sender: FDA-Public Use
  Company Number: US-PFIZER INC-2004111498

PATIENT
  Sex: Female
  Weight: 109 kg

DRUGS (8)
  1. PROVERA [Suspect]
     Indication: HORMONE REPLACEMENT THERAPY
     Dosage: 5 MG, UNK
     Route: 048
     Dates: start: 19970101, end: 19990101
  2. PROVERA [Suspect]
     Dosage: 10 MG, UNK
     Route: 048
     Dates: start: 19990101, end: 20000101
  3. MEDROXYPROGESTERONE AND MEDROXYPROGESTERONE ACETATE [Suspect]
     Indication: HORMONE REPLACEMENT THERAPY
     Dosage: 5 MG, UNK
     Route: 048
     Dates: start: 19970101, end: 19990101
  4. MEDROXYPROGESTERONE AND MEDROXYPROGESTERONE ACETATE [Suspect]
     Dosage: 10 MG, UNK
     Route: 048
     Dates: start: 19990101, end: 20000101
  5. PREMARIN [Suspect]
     Indication: HORMONE REPLACEMENT THERAPY
     Dosage: 0.9 MG, UNK
     Route: 065
     Dates: start: 19970101, end: 20000101
  6. PREMPHASE 14/14 [Suspect]
     Indication: HORMONE REPLACEMENT THERAPY
     Dosage: 0.625/5MG
     Route: 065
     Dates: start: 19950101, end: 19960101
  7. PREMPRO [Suspect]
     Indication: HORMONE REPLACEMENT THERAPY
     Dosage: 0.625/5MG
     Dates: start: 20010101, end: 20020101
  8. ANAFRANIL [Concomitant]
     Indication: ANXIETY
     Dosage: UNK
     Dates: start: 19980101, end: 20040101

REACTIONS (1)
  - BREAST CANCER FEMALE [None]
